FAERS Safety Report 7538687-7 (Version None)
Quarter: 2011Q2

REPORT INFORMATION
  Report Type: 
  Country: None (occurrence: None)
  Receive Date: 20110610
  Receipt Date: 20110527
  Transmission Date: 20111010
  Serious: Yes (Other)
  Sender: FDA-Public Use
  Company Number: US-JNJCP-30000056171

PATIENT
  Sex: Male

DRUGS (1)
  1. NTG ULTRA SHEER SUNBLOCK LOTION SPF100 USA NTUSL1US [Suspect]
     Route: 061

REACTIONS (1)
  - SKIN CANCER [None]
